FAERS Safety Report 5449956-9 (Version None)
Quarter: 2007Q3

REPORT INFORMATION
  Report Type: 
  Country: None (occurrence: None)
  Receive Date: 20070912
  Receipt Date: 20070904
  Transmission Date: 20080115
  Serious: Yes (Other)
  Sender: FDA-Public Use
  Company Number: US-JNJFOC-20070900948

PATIENT
  Sex: Female
  Weight: 67.13 kg

DRUGS (7)
  1. DURAGESIC-100 [Suspect]
     Indication: PAIN
     Dosage: 2X 100 UG/HR
     Route: 062
  2. LORTAB [Suspect]
     Indication: BREAKTHROUGH PAIN
     Route: 048
  3. PLAVIX [Concomitant]
     Indication: CARDIAC DISORDER
     Route: 048
  4. LIPITOR [Concomitant]
     Indication: CARDIAC DISORDER
     Route: 048
  5. TOPROL-XL [Concomitant]
     Indication: CARDIAC DISORDER
     Route: 048
  6. ASCORBIC ACID [Concomitant]
     Indication: MEDICAL DIET
     Route: 048
  7. CALCIUM [Concomitant]
     Indication: MEDICAL DIET
     Route: 048

REACTIONS (5)
  - ANOREXIA [None]
  - DRUG ADMINISTERED AT INAPPROPRIATE SITE [None]
  - HYPERTENSION [None]
  - MUSCLE ATROPHY [None]
  - WEIGHT DECREASED [None]
